FAERS Safety Report 6504660-0 (Version None)
Quarter: 2009Q4

REPORT INFORMATION
  Report Type: 
  Country: None (occurrence: None)
  Receive Date: 20091218
  Receipt Date: 20091209
  Transmission Date: 20100525
  Serious: Yes (Other)
  Sender: FDA-Public Use
  Company Number: US-RANBAXY-2009US-29673

PATIENT

DRUGS (1)
  1. VALACYCLOVIR HYDROCHLORIDE [Suspect]
     Indication: HERPES SIMPLEX
     Dosage: 500 MG, BID
     Route: 048
     Dates: start: 20091204, end: 20091208

REACTIONS (4)
  - ANAPHYLACTIC REACTION [None]
  - DIPLOPIA [None]
  - THROAT TIGHTNESS [None]
  - VISION BLURRED [None]
